FAERS Safety Report 15965049 (Version 2)
Quarter: 2019Q1

REPORT INFORMATION
  Report Type: Report from Study
  Country: IT (occurrence: IT)
  Receive Date: 20190215
  Receipt Date: 20190223
  Transmission Date: 20190418
  Serious: Yes (Other)
  Sender: FDA-Public Use
  Company Number: IT-ACCORD-107370

PATIENT
  Age: 38 Year
  Sex: Male

DRUGS (4)
  1. TRIPTYCH (TRAZODONE) [Suspect]
     Active Substance: TRAZODONE HYDROCHLORIDE
     Indication: SUBSTANCE USE
     Dosage: 100 MG
     Route: 048
     Dates: start: 20180605, end: 20180605
  2. QUETIAPINE. [Suspect]
     Active Substance: QUETIAPINE
     Indication: SUBSTANCE USE
     Route: 048
     Dates: start: 20180605, end: 20180605
  3. NOZINAN [Concomitant]
     Active Substance: LEVOMEPROMAZINE
     Dosage: 25 MG
     Route: 048
  4. CLONAZEPAM. [Concomitant]
     Active Substance: CLONAZEPAM
     Route: 048

REACTIONS (5)
  - Respiratory failure [Recovering/Resolving]
  - Drug abuse [Unknown]
  - Tachycardia [Recovering/Resolving]
  - Sopor [Recovering/Resolving]
  - Troponin increased [Recovering/Resolving]

NARRATIVE: CASE EVENT DATE: 20180605
